FAERS Safety Report 6076193-X (Version None)
Quarter: 2009Q1

REPORT INFORMATION
  Report Type: 
  Country: None (occurrence: None)
  Receive Date: 20090210
  Receipt Date: 20090128
  Transmission Date: 20090719
  Serious: Yes (Death)
  Sender: FDA-Public Use
  Company Number: 2009US000206

PATIENT
  Sex: Female

DRUGS (1)
  1. PROGRAF [Suspect]
     Indication: TRANSPLANT
     Dosage: ORAL
     Route: 048
     Dates: end: 20081201

REACTIONS (2)
  - CYTOMEGALOVIRUS INFECTION [None]
  - MENINGITIS [None]
